FAERS Safety Report 17551387 (Version 1)
Quarter: 2020Q1

REPORT INFORMATION
  Report Type: Spontaneous
  Country: US (occurrence: US)
  Receive Date: 20200317
  Receipt Date: 20200317
  Transmission Date: 20200409
  Serious: No
  Sender: FDA-Public Use
  Company Number: None

PATIENT
  Age: 45 Year
  Sex: Female
  Weight: 81 kg

DRUGS (11)
  1. BOTOX [Concomitant]
     Active Substance: ONABOTULINUMTOXINA
  2. AYGESTIN [Concomitant]
     Active Substance: NORETHINDRONE ACETATE
  3. ZOFRAN [Concomitant]
     Active Substance: ONDANSETRON HYDROCHLORIDE
  4. RITALIN [Concomitant]
     Active Substance: METHYLPHENIDATE HYDROCHLORIDE
  5. XANAX [Concomitant]
     Active Substance: ALPRAZOLAM
  6. MAGNESIUM [Concomitant]
     Active Substance: MAGNESIUM
  7. ZOMIG [Concomitant]
     Active Substance: ZOLMITRIPTAN
  8. PERCOCET [Concomitant]
     Active Substance: ACETAMINOPHEN\OXYCODONE HYDROCHLORIDE
  9. VITAMIN D3 [Concomitant]
     Active Substance: CHOLECALCIFEROL
  10. AIMOVIG [Suspect]
     Active Substance: ERENUMAB-AOOE
     Indication: MIGRAINE
     Dosage: ?          QUANTITY:1 INJECTION(S);OTHER FREQUENCY:MONTHLY;?
     Route: 030
     Dates: start: 20191201, end: 20200317
  11. HAIR AND NAIL MULTIVITAMIN [Concomitant]

REACTIONS (4)
  - Alopecia [None]
  - Anxiety [None]
  - Emotional distress [None]
  - Weight increased [None]

NARRATIVE: CASE EVENT DATE: 20191201
